FAERS Safety Report 7225968-X (Version None)
Quarter: 2011Q1

REPORT INFORMATION
  Report Type: 
  Country: None (occurrence: None)
  Receive Date: 20110113
  Receipt Date: 20101231
  Transmission Date: 20110831
  Serious: Yes (Other)
  Sender: FDA-Public Use
  Company Number: GB-MYLANLABS-2011S1000343

PATIENT
  Age: 75 Year
  Sex: Female

DRUGS (8)
  1. OFLOXACIN [Suspect]
     Indication: KERATITIS FUNGAL
  2. AMPHOTERICIN B [Suspect]
     Indication: PROPHYLAXIS
  3. FLUCONAZOLE [Suspect]
     Indication: KERATITIS FUNGAL
  4. DEXAMETHASONE [Suspect]
     Indication: PROPHYLAXIS
  5. ITRACONAZOLE [Suspect]
     Indication: KERATITIS FUNGAL
     Route: 048
  6. CEFUROXIME [Suspect]
     Indication: KERATITIS FUNGAL
  7. GENTAMICIN [Suspect]
     Indication: KERATITIS FUNGAL
  8. VORICONAZOLE [Suspect]
     Indication: KERATITIS FUNGAL

REACTIONS (1)
  - KERATITIS FUNGAL [None]
